FAERS Safety Report 10931581 (Version 3)
Quarter: 2015Q2

REPORT INFORMATION
  Report Type: Spontaneous
  Country: PK (occurrence: PK)
  Receive Date: 20150319
  Receipt Date: 20150630
  Transmission Date: 20150821
  Serious: Yes (Death, Other)
  Sender: FDA-Public Use
  Company Number: PK-GILEAD-2015-0143295

PATIENT
  Age: 60 Year
  Sex: Male
  Weight: 107 kg

DRUGS (2)
  1. XOLOX                              /00816701/ [Suspect]
     Active Substance: RIBAVIRIN
     Indication: HEPATITIS C
     Dosage: 600 MG, BID
     Route: 048
     Dates: start: 20141122, end: 20150111
  2. SOVALDI [Suspect]
     Active Substance: SOFOSBUVIR
     Indication: HEPATITIS C
     Dosage: 400 MG, QD
     Route: 048
     Dates: start: 20141122, end: 20150111

REACTIONS (3)
  - Myocardial infarction [Fatal]
  - Chest pain [Unknown]
  - Dyspnoea [Unknown]
